FAERS Safety Report 10142199 (Version 1)
Quarter: 2014Q2

REPORT INFORMATION
  Report Type: Spontaneous
  Country: FR (occurrence: FR)
  Receive Date: 20140429
  Receipt Date: 20140429
  Transmission Date: 20141212
  Serious: Yes (Death)
  Sender: FDA-Public Use
  Company Number: PHHY2014FR049708

PATIENT
  Age: 71 Year
  Sex: Male

DRUGS (4)
  1. METHOTREXATE SANDOZ [Suspect]
     Dosage: 15 MG, QW
     Route: 058
     Dates: start: 200408, end: 20070802
  2. REMICADE [Suspect]
     Dosage: 300 MG, UNK
     Route: 042
     Dates: start: 20070522, end: 20070705
  3. ALTIM [Suspect]
     Indication: JOINT EFFUSION
     Route: 014
     Dates: start: 20070705
  4. BI-PROFENID [Concomitant]
     Indication: PRODUCT USED FOR UNKNOWN INDICATION
     Route: 065

REACTIONS (2)
  - Acute respiratory distress syndrome [Fatal]
  - Bronchopulmonary aspergillosis [Fatal]
